FAERS Safety Report 7283897-X (Version None)
Quarter: 2011Q1

REPORT INFORMATION
  Report Type: 
  Country: None (occurrence: None)
  Receive Date: 20110209
  Receipt Date: 20110131
  Transmission Date: 20110831
  Serious: Yes (Hospitalization)
  Sender: FDA-Public Use
  Company Number: US-ASTRAZENECA-2011SE05555

PATIENT
  Age: 44 Year
  Sex: Male

DRUGS (4)
  1. VIMOVO [Suspect]
     Indication: ARTHRALGIA
     Dosage: 500/20 MG TWO TIMES A DAY
     Route: 048
     Dates: start: 20101104
  2. KEPPRA [Concomitant]
  3. DEPAKOTE [Concomitant]
  4. DILANTIN [Concomitant]

REACTIONS (3)
  - MENTAL DISORDER [None]
  - AGGRESSION [None]
  - FEELING JITTERY [None]
